FAERS Safety Report 24428098 (Version 1)
Quarter: 2024Q4

REPORT INFORMATION
  Report Type: Spontaneous
  Country: US (occurrence: US)
  Receive Date: 20241011
  Receipt Date: 20241011
  Transmission Date: 20250114
  Serious: Yes (Other)
  Sender: MERCK
  Company Number: US-MFDS-2021000061-2410USA003730

PATIENT
  Sex: Male
  Weight: 75.283 kg

DRUGS (1)
  1. JANUVIA [Suspect]
     Active Substance: SITAGLIPTIN PHOSPHATE
     Route: 048

REACTIONS (2)
  - Pancreatitis [Unknown]
  - Drug hypersensitivity [Unknown]
